FAERS Safety Report 5460069-2 (Version None)
Quarter: 2007Q3

REPORT INFORMATION
  Report Type: 
  Country: None (occurrence: None)
  Receive Date: 20070919
  Receipt Date: 20070620
  Transmission Date: 20080115
  Serious: Yes (Other)
  Sender: FDA-Public Use
  Company Number: US-ASTRAZENECA-2007UW11455

PATIENT
  Age: 2753 Day
  Sex: Female

DRUGS (7)
  1. SEROQUEL [Suspect]
     Indication: DEPRESSION
     Dosage: 12.5 MG TO 25 MG
     Route: 048
     Dates: start: 20070111, end: 20070118
  2. SEROQUEL [Suspect]
     Indication: INSOMNIA
     Dosage: 12.5 MG TO 25 MG
     Route: 048
     Dates: start: 20070111, end: 20070118
  3. SEROQUEL [Suspect]
     Indication: PARANOIA
     Dosage: 12.5 MG TO 25 MG
     Route: 048
     Dates: start: 20070111, end: 20070118
  4. WELLBUTRIN SR [Concomitant]
     Indication: ATTENTION DEFICIT/HYPERACTIVITY DISORDER
     Route: 048
  5. WELLBUTRIN SR [Concomitant]
     Indication: DEPRESSION
     Route: 048
  6. FOCALIN XR [Concomitant]
     Indication: ATTENTION DEFICIT/HYPERACTIVITY DISORDER
     Route: 048
  7. RENEURON [Concomitant]
     Indication: DEPRESSION
     Route: 048

REACTIONS (1)
  - NEUROLEPTIC MALIGNANT SYNDROME [None]
